FAERS Safety Report 6599869-4 (Version None)
Quarter: 2010Q1

REPORT INFORMATION
  Report Type: 
  Country: None (occurrence: None)
  Receive Date: 20100224
  Receipt Date: 20100217
  Transmission Date: 20100710
  Serious: Yes (Other)
  Sender: FDA-Public Use
  Company Number: US-JNJFOC-20100207954

PATIENT
  Sex: Female
  Weight: 90.72 kg

DRUGS (7)
  1. REMICADE [Suspect]
     Indication: RHEUMATOID ARTHRITIS
     Route: 042
  2. OMEPRAZOLE [Concomitant]
  3. CITALOPRAM HYDROBROMIDE [Concomitant]
     Indication: DEPRESSION
  4. CLARITIN [Concomitant]
     Indication: SEASONAL ALLERGY
  5. DARVOCET [Concomitant]
     Indication: PAIN
  6. CYCLOBENZAPRINE [Concomitant]
     Indication: MUSCLE RELAXANT THERAPY
  7. ZEMPLAR [Concomitant]
     Indication: THYROID DISORDER
     Dosage: DOSE: 1MCG

REACTIONS (1)
  - RENAL DISORDER [None]
